FAERS Safety Report 4703068-8 (Version None)
Quarter: 2005Q2

REPORT INFORMATION
  Report Type: 
  Country: None (occurrence: None)
  Receive Date: 20050628
  Receipt Date: 20050628
  Transmission Date: 20051028
  Serious: Yes (Life-Threatening, Other)
  Sender: FDA-Public Use
  Company Number: None

PATIENT
  Sex: Male
  Weight: 101.6057 kg

DRUGS (5)
  1. LAMISIL [Suspect]
     Indication: ONYCHOMYCOSIS
     Dosage: ORAL - DAILY
     Route: 048
  2. ALEVE [Concomitant]
  3. M.V.I. [Concomitant]
  4. VIT B12 [Concomitant]
  5. GLUCOSAMINE [Concomitant]

REACTIONS (2)
  - CARDIAC FAILURE CONGESTIVE [None]
  - EJECTION FRACTION DECREASED [None]
